FAERS Safety Report 7183417-4 (Version None)
Quarter: 2010Q4

REPORT INFORMATION
  Report Type: 
  Country: None (occurrence: None)
  Receive Date: 20101220
  Receipt Date: 20101220
  Transmission Date: 20110411
  Serious: No
  Sender: FDA-Public Use
  Company Number: None

PATIENT

DRUGS (1)
  1. DEFEROXAMINE MESYLATE [Suspect]
     Dosage: IV
     Route: 042

REACTIONS (1)
  - PRODUCT LABEL ISSUE [None]
